FAERS Safety Report 7820583-9 (Version None)
Quarter: 2011Q4

REPORT INFORMATION
  Report Type: 
  Country: None (occurrence: None)
  Receive Date: 20111018
  Receipt Date: 20111011
  Transmission Date: 20120403
  Serious: Yes (Other)
  Sender: FDA-Public Use
  Company Number: US-AMGEN-USASP2011050516

PATIENT
  Sex: Male

DRUGS (5)
  1. ARAVA [Concomitant]
     Dosage: UNK
  2. ENBREL [Suspect]
     Indication: PSORIASIS
     Dosage: 50 MG, QWK
     Dates: start: 20060901
  3. ENBREL [Suspect]
     Indication: RHEUMATOID ARTHRITIS
  4. ENBREL [Suspect]
     Indication: PSORIATIC ARTHROPATHY
  5. TREXALL [Concomitant]
     Dosage: UNK

REACTIONS (21)
  - FATIGUE [None]
  - PYREXIA [None]
  - DECREASED APPETITE [None]
  - INJECTION SITE DISCOLOURATION [None]
  - INTERVERTEBRAL DISC OPERATION [None]
  - POST-TRAUMATIC STRESS DISORDER [None]
  - INJECTION SITE ERYTHEMA [None]
  - INJECTION SITE PAIN [None]
  - INJECTION SITE INDURATION [None]
  - SPINAL OSTEOARTHRITIS [None]
  - PSORIATIC ARTHROPATHY [None]
  - RHEUMATOID ARTHRITIS [None]
  - INJECTION SITE SWELLING [None]
  - BLISTER [None]
  - PAIN [None]
  - NERVE INJURY [None]
  - INJECTION SITE INFLAMMATION [None]
  - INJECTION SITE PRURITUS [None]
  - OSTEOARTHRITIS [None]
  - GAIT DISTURBANCE [None]
  - PRURITUS [None]
